FAERS Safety Report 12225952 (Version 1)
Quarter: 2016Q1

REPORT INFORMATION
  Report Type: Spontaneous
  Country: US (occurrence: None)
  Receive Date: 20160330
  Receipt Date: 20160330
  Transmission Date: 20160526
  Serious: Yes (Life-Threatening)
  Sender: FDA-Public Use
  Company Number: None

PATIENT
  Age: 67 Year
  Sex: Female
  Weight: 104.33 kg

DRUGS (13)
  1. OCUVITE [Concomitant]
     Active Substance: VITAMINS
  2. FARXIGA [Suspect]
     Active Substance: DAPAGLIFLOZIN PROPANEDIOL
     Indication: TYPE 2 DIABETES MELLITUS
     Dosage: 1 TABLET (S) IN THE MORNING TAKEN BY MOUTH
     Route: 048
     Dates: end: 20160321
  3. CARVEDILOL. [Concomitant]
     Active Substance: CARVEDILOL
  4. RAMAPRIL [Concomitant]
  5. NOVALOG [Concomitant]
  6. CITALOPRAM [Concomitant]
     Active Substance: CITALOPRAM HYDROBROMIDE
  7. LOW DOSE ASPIRIN [Concomitant]
     Active Substance: ASPIRIN
  8. METFORMIN [Concomitant]
     Active Substance: METFORMIN HYDROCHLORIDE
  9. HYDROCHLOROTHIAZIDE. [Concomitant]
     Active Substance: HYDROCHLOROTHIAZIDE
  10. ALEVE [Concomitant]
     Active Substance: NAPROXEN SODIUM
  11. INVOKANA [Concomitant]
     Active Substance: CANAGLIFLOZIN
  12. GABAPENTIN. [Concomitant]
     Active Substance: GABAPENTIN
  13. TRAMADOL. [Concomitant]
     Active Substance: TRAMADOL

REACTIONS (3)
  - Asthenia [None]
  - Hypertension [None]
  - Chest pain [None]

NARRATIVE: CASE EVENT DATE: 20160301
